FAERS Safety Report 10631097 (Version 1)
Quarter: 2014Q4

REPORT INFORMATION
  Report Type: Spontaneous
  Country: US (occurrence: None)
  Receive Date: 20141203
  Receipt Date: 20141203
  Transmission Date: 20150529
  Serious: Yes (Hospitalization, Other)
  Sender: FDA-Public Use
  Company Number: None

PATIENT
  Age: 29 Year
  Sex: Female
  Weight: 84.37 kg

DRUGS (1)
  1. TERBUTALINE [Suspect]
     Active Substance: TERBUTALINE
     Indication: PREMATURE LABOUR
     Dosage: INTO THE MUSCLE

REACTIONS (4)
  - Injection site pruritus [None]
  - Movement disorder [None]
  - Injection site erythema [None]
  - Pain in extremity [None]

NARRATIVE: CASE EVENT DATE: 20141016
